FAERS Safety Report 8565279-3 (Version None)
Quarter: 2012Q3

REPORT INFORMATION
  Report Type: 
  Country: None (occurrence: None)
  Receive Date: 20120803
  Receipt Date: 20120730
  Transmission Date: 20120928
  Serious: Yes (Other)
  Sender: FDA-Public Use
  Company Number: US-ALEXION-A201201309

PATIENT
  Sex: Female
  Weight: 58.9 kg

DRUGS (1)
  1. SOLIRIS [Suspect]
     Indication: PAROXYSMAL NOCTURNAL HAEMOGLOBINURIA
     Dosage: 900 MG, Q2W
     Route: 042
     Dates: start: 20100909

REACTIONS (8)
  - FATIGUE [None]
  - INTERVERTEBRAL DISC PROTRUSION [None]
  - OSTEOPOROSIS [None]
  - TUMOUR INVASION [None]
  - OSTEOPENIA [None]
  - BACK PAIN [None]
  - DEPRESSION [None]
  - DEVICE BREAKAGE [None]
